FAERS Safety Report 18319460 (Version 1)
Quarter: 2020Q3

REPORT INFORMATION
  Report Type: Other
  Country: ES (occurrence: ES)
  Receive Date: 20200928
  Receipt Date: 20200928
  Transmission Date: 20201105
  Serious: Yes (Other)
  Sender: FDA-Public Use
  Company Number: ES-ROCHE-2683597

PATIENT

DRUGS (1)
  1. ALECTINIB. [Suspect]
     Active Substance: ALECTINIB
     Indication: NON-SMALL CELL LUNG CANCER
     Route: 065

REACTIONS (7)
  - Hepatotoxicity [Unknown]
  - Arthralgia [Unknown]
  - Thrombocytopenia [Unknown]
  - Pulmonary toxicity [Unknown]
  - Gastrointestinal disorder [Unknown]
  - Oedema [Unknown]
  - Asthenia [Unknown]
